FAERS Safety Report 8279312-X (Version None)
Quarter: 2012Q2

REPORT INFORMATION
  Report Type: 
  Country: None (occurrence: None)
  Receive Date: 20120412
  Receipt Date: 20110914
  Transmission Date: 20120825
  Serious: No
  Sender: FDA-Public Use
  Company Number: US-ASTRAZENECA-2011SE31122

PATIENT
  Age: 63 Year
  Sex: Female

DRUGS (7)
  1. CALCIUM CARBONATE [Concomitant]
  2. NEXIUM [Suspect]
     Indication: GASTROOESOPHAGEAL REFLUX DISEASE
     Route: 048
     Dates: start: 20060101
  3. HIGH CHOLESTEROL MEDICATION [Concomitant]
     Indication: CARDIAC DISORDER
  4. HEART MEDICATION [Concomitant]
     Indication: BLOOD CHOLESTEROL INCREASED
  5. NEXIUM [Suspect]
     Indication: DYSPEPSIA
     Route: 048
     Dates: start: 20060101
  6. NEXIUM [Suspect]
     Route: 048
     Dates: start: 20060101
  7. HYPERTENSION MEDICATION [Concomitant]
     Indication: HYPERTENSION

REACTIONS (3)
  - GASTROOESOPHAGEAL REFLUX DISEASE [None]
  - OSTEOPENIA [None]
  - DRUG DOSE OMISSION [None]
